FAERS Safety Report 7597724-4 (Version None)
Quarter: 2011Q3

REPORT INFORMATION
  Report Type: 
  Country: None (occurrence: None)
  Receive Date: 20110708
  Receipt Date: 20110627
  Transmission Date: 20111222
  Serious: Yes (Hospitalization)
  Sender: FDA-Public Use
  Company Number: CA-GLAXOSMITHKLINE-A0935247A

PATIENT
  Age: 45 Year
  Sex: Female

DRUGS (4)
  1. TYLENOL W/ CODEINE NO. 3 [Concomitant]
  2. CITALOPRAM HYDROBROMIDE [Concomitant]
  3. TRAMADOL HCL [Suspect]
     Dosage: 300MG PER DAY
     Route: 048
  4. ZYBAN [Suspect]
     Dosage: 150MG TWICE PER DAY
     Route: 065

REACTIONS (3)
  - FALL [None]
  - CONVULSION [None]
  - HEAD INJURY [None]
